FAERS Safety Report 7422742-6 (Version None)
Quarter: 2011Q2

REPORT INFORMATION
  Report Type: 
  Country: None (occurrence: None)
  Receive Date: 20110419
  Receipt Date: 20110418
  Transmission Date: 20111010
  Serious: Yes (Life-Threatening)
  Sender: FDA-Public Use
  Company Number: FR-SANOFI-AVENTIS-2011SA023534

PATIENT
  Age: 63 Year
  Sex: Male

DRUGS (8)
  1. GEMCITABINE [Concomitant]
     Route: 041
     Dates: start: 20101213, end: 20101213
  2. GEMCITABINE [Concomitant]
     Route: 041
     Dates: start: 20110404, end: 20110404
  3. ZOPHREN [Concomitant]
     Route: 042
     Dates: start: 20110401, end: 20110401
  4. ZOPHREN [Concomitant]
     Indication: PREMEDICATION
     Route: 042
     Dates: start: 20101201, end: 20101201
  5. DEXAMETHASONE [Concomitant]
     Route: 042
     Dates: start: 20110401, end: 20110401
  6. ELOXATIN [Suspect]
     Route: 041
     Dates: start: 20101214
  7. ELOXATIN [Suspect]
     Route: 041
     Dates: start: 20110405, end: 20110405
  8. DEXAMETHASONE [Concomitant]
     Indication: PREMEDICATION
     Route: 042
     Dates: start: 20101201, end: 20101201

REACTIONS (8)
  - NAUSEA [None]
  - CARDIO-RESPIRATORY ARREST [None]
  - BRADYCARDIA [None]
  - HYPOTENSION [None]
  - VOMITING [None]
  - MYOCARDIAL ISCHAEMIA [None]
  - NEUROGENIC SHOCK [None]
  - ELECTROCARDIOGRAM ST SEGMENT DEPRESSION [None]
